FAERS Safety Report 7651306-4 (Version None)
Quarter: 2011Q3

REPORT INFORMATION
  Report Type: 
  Country: None (occurrence: None)
  Receive Date: 20110802
  Receipt Date: 20110729
  Transmission Date: 20111222
  Serious: Yes (Other)
  Sender: FDA-Public Use
  Company Number: CA-ABBOTT-10P-028-0645468-00

PATIENT
  Sex: Female
  Weight: 105.33 kg

DRUGS (9)
  1. HUMIRA [Suspect]
     Dosage: INCREASED TO WEEKLY
     Dates: start: 20090804
  2. VITAMIN D [Concomitant]
     Indication: VITAMIN D DEFICIENCY
  3. VITAMIN B [Concomitant]
     Indication: VITAMIN B COMPLEX DEFICIENCY
     Dosage: UNKNOWN
     Route: 048
  4. SCOPOLAMINE [Concomitant]
     Indication: PRODUCT USED FOR UNKNOWN INDICATION
     Dosage: UNKNOWN
  5. HUMIRA [Suspect]
     Route: 058
  6. PRAZOLAM [Concomitant]
     Indication: DEPRESSION
     Route: 048
  7. HUMIRA [Suspect]
     Indication: CROHN'S DISEASE
     Route: 058
     Dates: start: 20090321, end: 20100101
  8. WELLBUTRIN [Concomitant]
     Indication: DEPRESSION
     Route: 048
     Dates: start: 20090101
  9. PREVACID [Concomitant]
     Indication: GASTROOESOPHAGEAL REFLUX DISEASE
     Route: 048

REACTIONS (4)
  - FISTULA [None]
  - GASTROINTESTINAL OEDEMA [None]
  - ABSCESS [None]
  - GAIT DISTURBANCE [None]
